FAERS Safety Report 6021207-6 (Version None)
Quarter: 2008Q4

REPORT INFORMATION
  Report Type: 
  Country: None (occurrence: None)
  Receive Date: 20081224
  Receipt Date: 20081224
  Transmission Date: 20090506
  Serious: Yes (Hospitalization)
  Sender: FDA-Public Use
  Company Number: None

PATIENT
  Age: 53 Year
  Sex: Male
  Weight: 101.6057 kg

DRUGS (3)
  1. CELLCEPT [Suspect]
     Dosage: 500MG ORALLY TWICE DAILY
     Route: 048
     Dates: start: 20081111
  2. TACROLIMUS [Concomitant]
  3. PREDNISONE [Concomitant]

REACTIONS (6)
  - DIARRHOEA [None]
  - DRUG INEFFECTIVE [None]
  - FOCAL SEGMENTAL GLOMERULOSCLEROSIS [None]
  - KIDNEY TRANSPLANT REJECTION [None]
  - PLASMAPHERESIS [None]
  - RENAL IMPAIRMENT [None]
